FAERS Safety Report 8476829 (Version 49)
Quarter: 2016Q3

REPORT INFORMATION
  Report Type: Spontaneous
  Country: CA (occurrence: CA)
  Receive Date: 20120326
  Receipt Date: 20160721
  Transmission Date: 20161109
  Serious: Yes (Hospitalization, Other)
  Sender: FDA-Public Use
  Company Number: CA-ROCHE-1052220

PATIENT
  Age: 65 Year
  Sex: Female

DRUGS (28)
  1. CORTISONE [Suspect]
     Active Substance: CORTISONE\HYDROCORTISONE
     Route: 065
     Dates: start: 20150824
  2. XOLAIR [Suspect]
     Active Substance: OMALIZUMAB
     Route: 058
     Dates: start: 20120301
  3. XOLAIR [Suspect]
     Active Substance: OMALIZUMAB
     Route: 058
     Dates: start: 20150323
  4. CORTISONE [Suspect]
     Active Substance: CORTISONE\HYDROCORTISONE
     Indication: RESPIRATORY TRACT CONGESTION
     Dosage: FOR 4 DAYS
     Route: 065
  5. APO-FOLIC [Concomitant]
     Indication: PRODUCT USED FOR UNKNOWN INDICATION
     Route: 065
  6. XOLAIR [Suspect]
     Active Substance: OMALIZUMAB
     Route: 058
     Dates: start: 20120807
  7. XOLAIR [Suspect]
     Active Substance: OMALIZUMAB
     Route: 058
     Dates: start: 20121204
  8. XOLAIR [Suspect]
     Active Substance: OMALIZUMAB
     Route: 058
     Dates: start: 20120514
  9. XOLAIR [Suspect]
     Active Substance: OMALIZUMAB
     Route: 058
     Dates: start: 20120719
  10. APO-TRIAZIDE [Concomitant]
     Active Substance: HYDROCHLOROTHIAZIDE\TRIAMTERENE
     Indication: PRODUCT USED FOR UNKNOWN INDICATION
     Route: 065
  11. PREDNISONE. [Concomitant]
     Active Substance: PREDNISONE
     Route: 065
  12. XOLAIR [Suspect]
     Active Substance: OMALIZUMAB
     Route: 058
     Dates: start: 20130131
  13. XOLAIR [Suspect]
     Active Substance: OMALIZUMAB
     Route: 058
     Dates: start: 201308
  14. XOLAIR [Suspect]
     Active Substance: OMALIZUMAB
     Route: 058
     Dates: start: 20150105
  15. XOLAIR [Suspect]
     Active Substance: OMALIZUMAB
     Route: 058
     Dates: start: 20150122
  16. XOLAIR [Suspect]
     Active Substance: OMALIZUMAB
     Route: 058
     Dates: start: 20120206
  17. XOLAIR [Suspect]
     Active Substance: OMALIZUMAB
     Route: 058
     Dates: start: 20141124
  18. CORTISONE [Suspect]
     Active Substance: CORTISONE\HYDROCORTISONE
     Indication: LOWER RESPIRATORY TRACT INFECTION
     Route: 065
  19. PREDNISONE. [Concomitant]
     Active Substance: PREDNISONE
     Route: 065
  20. XOLAIR [Suspect]
     Active Substance: OMALIZUMAB
     Route: 058
     Dates: start: 20120319
  21. XOLAIR [Suspect]
     Active Substance: OMALIZUMAB
     Route: 058
     Dates: start: 20151112
  22. CORTISONE [Suspect]
     Active Substance: CORTISONE\HYDROCORTISONE
     Indication: WHEEZING
     Route: 065
  23. CORTISONE [Suspect]
     Active Substance: CORTISONE\HYDROCORTISONE
     Dosage: FOR 5 DAYS
     Route: 065
  24. LIPITOR [Concomitant]
     Active Substance: ATORVASTATIN CALCIUM
  25. XOLAIR [Suspect]
     Active Substance: OMALIZUMAB
     Indication: ASTHMA
     Route: 058
     Dates: start: 20080723
  26. XOLAIR [Suspect]
     Active Substance: OMALIZUMAB
     Route: 058
     Dates: start: 20090420, end: 201106
  27. CORTISONE [Suspect]
     Active Substance: CORTISONE\HYDROCORTISONE
     Indication: RHEUMATOID ARTHRITIS
     Route: 065
  28. CORTISONE [Suspect]
     Active Substance: CORTISONE\HYDROCORTISONE
     Indication: OSTEOPOROSIS
     Dosage: FOR 4 DAYS
     Route: 065

REACTIONS (41)
  - Musculoskeletal pain [Unknown]
  - Arthralgia [Not Recovered/Not Resolved]
  - Rales [Unknown]
  - Fatigue [Unknown]
  - Increased upper airway secretion [Unknown]
  - Dizziness [Unknown]
  - Heart rate increased [Unknown]
  - Pulmonary congestion [Unknown]
  - Wheezing [Not Recovered/Not Resolved]
  - Rheumatoid arthritis [Recovering/Resolving]
  - Sputum discoloured [Not Recovered/Not Resolved]
  - Swelling face [Unknown]
  - Blood pressure decreased [Not Recovered/Not Resolved]
  - Spinal osteoarthritis [Unknown]
  - Weight increased [Unknown]
  - Asthma [Unknown]
  - Nasal congestion [Unknown]
  - Sciatica [Unknown]
  - Condition aggravated [Recovering/Resolving]
  - Mycobacterium avium complex infection [Not Recovered/Not Resolved]
  - Bronchiectasis [Not Recovered/Not Resolved]
  - Pneumonia [Unknown]
  - Osteoporosis [Recovering/Resolving]
  - Lower respiratory tract infection [Unknown]
  - Blood cholesterol increased [Unknown]
  - Contusion [Unknown]
  - Productive cough [Not Recovered/Not Resolved]
  - Lung infection [Unknown]
  - Peripheral swelling [Unknown]
  - Blood pressure increased [Not Recovered/Not Resolved]
  - Bronchial disorder [Unknown]
  - Cough [Not Recovered/Not Resolved]
  - Dyspnoea [Unknown]
  - Oxygen saturation decreased [Unknown]
  - Rosacea [Unknown]
  - Lower respiratory tract infection bacterial [Unknown]
  - Sinusitis [Unknown]
  - Lenticular opacities [Unknown]
  - Malaise [Unknown]
  - Lung disorder [Unknown]
  - Nasopharyngitis [Unknown]

NARRATIVE: CASE EVENT DATE: 20120206
